FAERS Safety Report 9779704 (Version 2)
Quarter: 2014Q1

REPORT INFORMATION
  Report Type: Spontaneous
  Country: US (occurrence: US)
  Receive Date: 20131223
  Receipt Date: 20140131
  Transmission Date: 20141002
  Serious: Yes (Hospitalization)
  Sender: FDA-Public Use
  Company Number: US-B.I. PHARMACEUTICALS,INC./RIDGEFIELD-2013-BI-43432BP

PATIENT
  Sex: Female
  Weight: 88.9 kg

DRUGS (2)
  1. PRADAXA [Suspect]
     Indication: PRODUCT USED FOR UNKNOWN INDICATION
     Dates: start: 20120125, end: 20120131
  2. ARMIDEX [Concomitant]
     Dates: start: 2008, end: 20120430

REACTIONS (1)
  - Gastrointestinal haemorrhage [Unknown]
